FAERS Safety Report 9183370 (Version 1)
Quarter: 2013Q1

REPORT INFORMATION
  Report Type: Spontaneous
  Country: VE (occurrence: VE)
  Receive Date: 20130322
  Receipt Date: 20130322
  Transmission Date: 20140127
  Serious: Yes (Other)
  Sender: FDA-Public Use
  Company Number: VE-PFIZER INC-2013094233

PATIENT
  Age: 52 Year
  Sex: Female

DRUGS (2)
  1. LIPITOR [Suspect]
     Dosage: 20 MG, UNK
  2. NORVASC [Concomitant]
     Dosage: 5 MG, UNK

REACTIONS (1)
  - Aortic valve stenosis [Unknown]
